FAERS Safety Report 17520943 (Version 3)
Quarter: 2020Q2

REPORT INFORMATION
  Report Type: Report from Study
  Country: JP (occurrence: JP)
  Receive Date: 20200309
  Receipt Date: 20200511
  Transmission Date: 20200713
  Serious: Yes (Hospitalization, Other)
  Sender: FDA-Public Use
  Company Number: JP-BRISTOL-MYERS SQUIBB COMPANY-BMS-2020-019822

PATIENT
  Age: 39 Year
  Sex: Male
  Weight: 58.8 kg

DRUGS (6)
  1. NIVOLUMAB [Suspect]
     Active Substance: NIVOLUMAB
     Indication: NON-SMALL CELL LUNG CANCER RECURRENT
     Dosage: 240 MILLIGRAM, Q2WK
     Route: 041
     Dates: start: 20190329
  2. TAKECAB [Concomitant]
     Active Substance: VONOPRAZAN FUMARATE
     Indication: ABDOMINAL PAIN
     Dosage: 10 MILLIGRAM, QD
     Route: 048
     Dates: start: 20190708
  3. PREDONINE [Concomitant]
     Active Substance: PREDNISOLONE
     Indication: PAIN
     Dosage: 5 MILLIGRAM, QD
     Route: 048
     Dates: start: 20180625
  4. URSODEOXYCHOLIC ACID [Concomitant]
     Active Substance: URSODIOL
     Indication: DYSPEPSIA
     Dosage: 200 MILLIGRAM, Q8H
     Route: 048
     Dates: start: 20190328
  5. GLYCYRON [DL-METHIONINE;GLYCINE;GLYCYRRHIZIC ACID, AMMONIUM SALT] [Concomitant]
     Indication: HEPATIC FUNCTION ABNORMAL
     Dosage: 50 MILLIGRAM, Q8H
     Route: 048
     Dates: start: 20190328
  6. MIYA-BM [Concomitant]
     Active Substance: CLOSTRIDIUM BUTYRICUM SPORES STRAIN M-55
     Indication: DYSPEPSIA
     Dosage: 2 DOSAGE FORM, Q8H
     Route: 048
     Dates: start: 20180723

REACTIONS (3)
  - Brain oedema [Recovering/Resolving]
  - Abdominal pain [Unknown]
  - Gastroenteritis [Recovered/Resolved]

NARRATIVE: CASE EVENT DATE: 20190621
